FAERS Safety Report 8265856-3 (Version None)
Quarter: 2012Q2

REPORT INFORMATION
  Report Type: 
  Country: None (occurrence: None)
  Receive Date: 20120406
  Receipt Date: 20120312
  Transmission Date: 20120825
  Serious: Yes (Other)
  Sender: FDA-Public Use
  Company Number: US-GLAXOSMITHKLINE-A0969322A

PATIENT
  Age: 16 Year
  Sex: Female

DRUGS (4)
  1. ZONEGRAN [Concomitant]
  2. FOCALIN [Concomitant]
  3. FOLIC ACID [Concomitant]
  4. LAMICTAL XR [Suspect]
     Indication: EPILEPSY
     Dosage: 400MG TWICE PER DAY
     Route: 048
     Dates: start: 20020101

REACTIONS (11)
  - NAUSEA [None]
  - OVERDOSE [None]
  - BLOOD SODIUM DECREASED [None]
  - EYE MOVEMENT DISORDER [None]
  - PERFORMANCE STATUS DECREASED [None]
  - VOMITING [None]
  - BLINDNESS [None]
  - LETHARGY [None]
  - BEDRIDDEN [None]
  - DEHYDRATION [None]
  - REGURGITATION [None]
